FAERS Safety Report 23986853 (Version 2)
Quarter: 2024Q3

REPORT INFORMATION
  Report Type: Spontaneous
  Country: US (occurrence: US)
  Receive Date: 20240618
  Receipt Date: 20240730
  Transmission Date: 20241016
  Serious: No
  Sender: ALEXION PHARMACEUTICALS
  Company Number: US-ALXN-202406USA000765US

PATIENT
  Sex: Female

DRUGS (3)
  1. ULTOMIRIS [Suspect]
     Active Substance: RAVULIZUMAB-CWVZ
     Indication: Myasthenia gravis
     Dosage: 2700 MILLIGRAM
     Route: 042
     Dates: start: 202406
  2. EPINEPHRINE [Concomitant]
     Active Substance: EPINEPHRINE
     Indication: Product used for unknown indication
     Dosage: UNK
     Route: 065
  3. SODIUM CHLORIDE [Concomitant]
     Active Substance: SODIUM CHLORIDE
     Indication: Product used for unknown indication
     Dosage: 50ML/BAG, POSIFLUSH 10ML
     Route: 065

REACTIONS (1)
  - Arthralgia [Unknown]
